FAERS Safety Report 4303834-7 (Version None)
Quarter: 2004Q1

REPORT INFORMATION
  Report Type: 
  Country: None (occurrence: None)
  Receive Date: 20040224
  Receipt Date: 20040224
  Transmission Date: 20041129
  Serious: Yes (Disabling)
  Sender: FDA-Public Use
  Company Number: None

PATIENT
  Age: 82 Year
  Sex: Female
  Weight: 81.6475 kg

DRUGS (2)
  1. LIPITOR [Suspect]
     Indication: BLOOD CHOLESTEROL INCREASED
     Dosage: PM BY MOUTH
     Route: 048
  2. HIGH BLOOD PRESSURE MEDICATION [Concomitant]

REACTIONS (2)
  - BALANCE DISORDER [None]
  - HYPOAESTHESIA [None]
